FAERS Safety Report 7319912-4 (Version None)
Quarter: 2011Q1

REPORT INFORMATION
  Report Type: 
  Country: None (occurrence: None)
  Receive Date: 20110228
  Receipt Date: 20101129
  Transmission Date: 20110831
  Serious: No
  Sender: FDA-Public Use
  Company Number: A0897524A

PATIENT
  Age: 57 Year
  Sex: Female

DRUGS (1)
  1. LAMICTAL [Suspect]
     Dosage: 100MG UNKNOWN
     Route: 065
     Dates: start: 20070301

REACTIONS (3)
  - CHEST PAIN [None]
  - SPEECH DISORDER [None]
  - PAIN [None]
